FAERS Safety Report 7398371-X (Version None)
Quarter: 2011Q2

REPORT INFORMATION
  Report Type: 
  Country: None (occurrence: None)
  Receive Date: 20110406
  Receipt Date: 20110330
  Transmission Date: 20111010
  Serious: Yes (Other)
  Sender: FDA-Public Use
  Company Number: US-RB-021821-11

PATIENT
  Age: 66 Year
  Sex: Male

DRUGS (1)
  1. SUBOXONE [Suspect]
     Indication: PRODUCT USED FOR UNKNOWN INDICATION
     Dosage: DOSING INFORMATION UNKNOWN
     Route: 065

REACTIONS (9)
  - ASTHENIA [None]
  - THROAT IRRITATION [None]
  - NERVOUSNESS [None]
  - PAIN [None]
  - DRUG WITHDRAWAL SYNDROME [None]
  - LOSS OF CONSCIOUSNESS [None]
  - BACK PAIN [None]
  - DEPRESSED MOOD [None]
  - PAIN IN EXTREMITY [None]
